FAERS Safety Report 5922519-4 (Version None)
Quarter: 2008Q3

REPORT INFORMATION
  Report Type: 
  Country: None (occurrence: None)
  Receive Date: 20080929
  Receipt Date: 20080916
  Transmission Date: 20090109
  Serious: Yes (Other)
  Sender: FDA-Public Use
  Company Number: AEUSA200800230

PATIENT
  Age: 6 Year
  Sex: Male

DRUGS (1)
  1. GAMUNEX [Suspect]
     Indication: IMMUNODEFICIENCY
     Dosage: QM; IV
     Route: 042

REACTIONS (4)
  - AGGRESSION [None]
  - EPSTEIN-BARR VIRUS ANTIBODY POSITIVE [None]
  - FATIGUE [None]
  - HUMAN HERPES VIRUS 6 SEROLOGY POSITIVE [None]
